FAERS Safety Report 5706593-6 (Version None)
Quarter: 2008Q2

REPORT INFORMATION
  Report Type: 
  Country: None (occurrence: None)
  Receive Date: 20080414
  Receipt Date: 20001002
  Transmission Date: 20081010
  Serious: Yes (Death)
  Sender: FDA-Public Use
  Company Number: 2001IC000225

PATIENT
  Age: 52 Year
  Sex: Male

DRUGS (5)
  1. ANCOTIL (FLUCYTOSINE) [Suspect]
     Indication: CANDIDIASIS
     Dosage: 2.5 GM; IV
     Route: 042
     Dates: start: 20000224, end: 20000227
  2. AMPHOTERICIN B [Concomitant]
  3. AMPHOTERICIN B [Concomitant]
  4. AMPHOTERICIN B [Concomitant]
  5. FLUCONAZOLE [Concomitant]

REACTIONS (1)
  - DEATH [None]
